FAERS Safety Report 21009349 (Version 1)
Quarter: 2022Q2

REPORT INFORMATION
  Report Type: Spontaneous
  Country: US (occurrence: US)
  Receive Date: 20220627
  Receipt Date: 20220627
  Transmission Date: 20220721
  Serious: No
  Sender: FDA-Public Use
  Company Number: US-PFIZER INC-202200812155

PATIENT
  Age: 41 Year
  Sex: Female

DRUGS (4)
  1. CIBINQO [Suspect]
     Active Substance: ABROCITINIB
     Indication: Pruritus
     Dosage: 100 MG, 1X/DAY
     Route: 048
  2. CIBINQO [Suspect]
     Active Substance: ABROCITINIB
     Indication: Eczema
  3. CIBINQO [Suspect]
     Active Substance: ABROCITINIB
     Indication: Urticaria
  4. DUPIXENT [Concomitant]
     Active Substance: DUPILUMAB
     Dosage: UNK

REACTIONS (2)
  - Off label use [Unknown]
  - Condition aggravated [Unknown]
